FAERS Safety Report 23139236 (Version 1)
Quarter: 2023Q4

REPORT INFORMATION
  Report Type: Spontaneous
  Country: US (occurrence: US)
  Receive Date: 20231102
  Receipt Date: 20231102
  Transmission Date: 20240110
  Serious: No
  Sender: FDA-Public Use
  Company Number: US-KOWA PHARMACEUTICALS-2023KOW00037

PATIENT
  Age: 75 Year
  Sex: Female
  Weight: 49.887 kg

DRUGS (3)
  1. SEGLENTIS [Suspect]
     Active Substance: CELECOXIB\TRAMADOL HYDROCHLORIDE
     Indication: Procedural pain
     Dosage: 2 TABLETS, 2X/DAY (Q 12)
     Dates: start: 20230817
  2. AMOXICILLIN [Concomitant]
     Active Substance: AMOXICILLIN
     Dosage: UNK, 1X/DAY
     Dates: start: 20230817, end: 20230820
  3. MOTRIN [Concomitant]
     Active Substance: IBUPROFEN
     Dosage: UNK, EVERY 4 TO 6 HRS
     Dates: start: 20230817, end: 20230820

REACTIONS (1)
  - Drug ineffective [Unknown]

NARRATIVE: CASE EVENT DATE: 20230817
